FAERS Safety Report 16625108 (Version 4)
Quarter: 2020Q1

REPORT INFORMATION
  Report Type: Spontaneous
  Country: US (occurrence: US)
  Receive Date: 20190724
  Receipt Date: 20200306
  Transmission Date: 20200409
  Serious: No
  Sender: FDA-Public Use
  Company Number: US-PFIZER INC-2019311826

PATIENT
  Age: 54 Year
  Sex: Male

DRUGS (2)
  1. XELJANZ XR [Suspect]
     Active Substance: TOFACITINIB CITRATE
     Dosage: 11 MG, DAILY
     Dates: start: 20190620
  2. XELJANZ XR [Suspect]
     Active Substance: TOFACITINIB CITRATE
     Indication: RHEUMATOID ARTHRITIS
     Dosage: 11 MG, DAILY
     Route: 048
     Dates: start: 20190621

REACTIONS (12)
  - Blood pressure decreased [Unknown]
  - Ear discomfort [Unknown]
  - Change of bowel habit [Unknown]
  - Faeces hard [Unknown]
  - Stomatitis [Unknown]
  - Dry skin [Unknown]
  - Headache [Unknown]
  - Influenza like illness [Unknown]
  - Skin fissures [Unknown]
  - Abnormal faeces [Unknown]
  - Diarrhoea [Unknown]
  - Blood cholesterol increased [Unknown]
